FAERS Safety Report 5498160-7 (Version None)
Quarter: 2007Q4

REPORT INFORMATION
  Report Type: 
  Country: None (occurrence: None)
  Receive Date: 20071025
  Receipt Date: 20071021
  Transmission Date: 20080405
  Serious: Yes (Death)
  Sender: FDA-Public Use
  Company Number: IT-GENENTECH-250146

PATIENT

DRUGS (13)
  1. RITUXAN [Suspect]
     Indication: B-CELL LYMPHOMA
     Dosage: 375 MG/M2, UNK
  2. CYCLOPHOSPHAMIDE [Concomitant]
     Indication: B-CELL LYMPHOMA
     Dosage: 7 G/M2, UNK
  3. DOXORUBICIN HCL [Concomitant]
     Indication: B-CELL LYMPHOMA
     Dosage: 50 MG/M2, UNK
  4. DOXORUBICIN HCL [Concomitant]
     Dosage: 75 MG/M2, UNK
  5. VINCRISTINE [Concomitant]
     Indication: B-CELL LYMPHOMA
     Dosage: 1.2 MG/M2, D1-14/Q3W
  6. PREDNISONE [Concomitant]
     Indication: B-CELL LYMPHOMA
     Dosage: 50 MG/M2, DAYS 1+22
  7. PERIPHERAL BLOOD STEM CELL [Concomitant]
     Indication: B-CELL LYMPHOMA
  8. CYTARABINE [Concomitant]
     Indication: B-CELL LYMPHOMA
     Dosage: 2 G/M2, BID
  9. ETOPOSIDE [Concomitant]
     Indication: B-CELL LYMPHOMA
  10. CISPLATIN [Concomitant]
     Indication: B-CELL LYMPHOMA
  11. MITOXANTRONE [Concomitant]
     Indication: B-CELL LYMPHOMA
     Dosage: 60 MG/M2, UNK
  12. L-PAM [Concomitant]
     Indication: B-CELL LYMPHOMA
     Dosage: 180 MG/M2, UNK
  13. RADIOTHERAPY [Concomitant]
     Indication: B-CELL LYMPHOMA

REACTIONS (1)
  - SEPSIS [None]
